FAERS Safety Report 6609341-0 (Version None)
Quarter: 2010Q1

REPORT INFORMATION
  Report Type: 
  Country: None (occurrence: None)
  Receive Date: 20100302
  Receipt Date: 20100224
  Transmission Date: 20100710
  Serious: Yes (Hospitalization)
  Sender: FDA-Public Use
  Company Number: US-BIOGENIDEC-2010BI005130

PATIENT
  Age: 51 Year
  Sex: Male

DRUGS (11)
  1. TYSABRI [Suspect]
     Indication: MULTIPLE SCLEROSIS
     Route: 042
     Dates: start: 20080311, end: 20100101
  2. OMEGA 3 FATTY ACID [Concomitant]
  3. CENTRUM SILVER [Concomitant]
  4. ASPIRIN [Concomitant]
  5. ADVICOR [Concomitant]
  6. TRICOR [Concomitant]
  7. PRINIVIL [Concomitant]
  8. SYNTHROID [Concomitant]
  9. REQUIP [Concomitant]
  10. REQUIP [Concomitant]
  11. BACLOFEN [Concomitant]

REACTIONS (2)
  - VASCULAR GRAFT OCCLUSION [None]
  - VOMITING [None]
